FAERS Safety Report 7118160-0 (Version None)
Quarter: 2010Q4

REPORT INFORMATION
  Report Type: 
  Country: None (occurrence: None)
  Receive Date: 20101123
  Receipt Date: 20101110
  Transmission Date: 20110411
  Serious: Yes (Other)
  Sender: FDA-Public Use
  Company Number: LV-JNJFOC-20101106416

PATIENT

DRUGS (2)
  1. HALOPERIDOL [Suspect]
     Indication: AGITATION
     Dosage: UPTO 3  INJECTIONS (19.5 MG)
     Route: 030
  2. HALOPERIDOL [Suspect]
     Route: 048

REACTIONS (2)
  - AKATHISIA [None]
  - SUICIDAL IDEATION [None]
